FAERS Safety Report 14848194 (Version 21)
Quarter: 2019Q1

REPORT INFORMATION
  Report Type: Report from Study
  Country: JP (occurrence: JP)
  Receive Date: 20180504
  Receipt Date: 20190325
  Transmission Date: 20190417
  Serious: Yes (Death, Hospitalization)
  Sender: FDA-Public Use
  Company Number: JP-ROCHE-2116432

PATIENT
  Age: 74 Year
  Sex: Male
  Weight: 86 kg

DRUGS (63)
  1. ARTIST [Concomitant]
     Active Substance: CARVEDILOL
     Route: 048
     Dates: start: 20171018, end: 20180428
  2. CANDESARTAN. [Concomitant]
     Active Substance: CANDESARTAN
     Route: 048
     Dates: start: 20180429
  3. ADFEED [Concomitant]
     Dosage: ADFEED PAP
     Route: 062
     Dates: start: 20180419, end: 20180419
  4. POTASSIUM CANRENOATE [Concomitant]
     Active Substance: CANRENOATE POTASSIUM
     Route: 042
     Dates: start: 20180428, end: 20180428
  5. SPIRONOLACTONE. [Concomitant]
     Active Substance: SPIRONOLACTONE
     Route: 048
     Dates: start: 20180428, end: 20180505
  6. NORADRENALINE [Concomitant]
     Active Substance: NOREPINEPHRINE
     Route: 042
     Dates: start: 20180428, end: 20180429
  7. CARVEDILOL. [Concomitant]
     Active Substance: CARVEDILOL
     Route: 048
     Dates: start: 20180427, end: 20180428
  8. SOLACET F [Concomitant]
     Route: 042
     Dates: start: 20180428, end: 20180428
  9. KCL [Concomitant]
     Active Substance: POTASSIUM CHLORIDE
     Route: 042
     Dates: start: 20180428, end: 20180613
  10. SULTAMICILLIN [Concomitant]
     Active Substance: SULTAMICILLIN
     Route: 042
     Dates: start: 20180608, end: 20180613
  11. TAZOPIPE [Concomitant]
     Active Substance: PIPERACILLIN SODIUM\TAZOBACTAM SODIUM
     Route: 042
     Dates: start: 20180428, end: 20180507
  12. SODIUM CHLORIDE. [Concomitant]
     Active Substance: SODIUM CHLORIDE
     Route: 042
     Dates: start: 20180517, end: 20180517
  13. LACTEC [Concomitant]
     Active Substance: CALCIUM CHLORIDE ANHYDROUS\POTASSIUM CHLORIDE\SODIUM CHLORIDE\SODIUM LACTATE
     Route: 042
     Dates: start: 20180508, end: 20180509
  14. FUROSEMIDE. [Concomitant]
     Active Substance: FUROSEMIDE
     Route: 042
     Dates: start: 20180518, end: 20180613
  15. ZOLADEX LA [Concomitant]
     Active Substance: GOSERELIN ACETATE
     Route: 058
     Dates: start: 2008, end: 20080425
  16. K-SUPPLY [Concomitant]
     Active Substance: POTASSIUM CHLORIDE
     Route: 048
     Dates: start: 20180427, end: 20180429
  17. PEROSPIRONE HCL [Concomitant]
     Active Substance: PEROSPIRONE HYDROCHLORIDE
     Route: 048
     Dates: start: 20180428, end: 20180428
  18. SERENACE [Concomitant]
     Active Substance: HALOPERIDOL
     Route: 042
     Dates: start: 20180608, end: 20180613
  19. SULBACILLIN (JAPAN) [Concomitant]
     Active Substance: AMPICILLIN SODIUM\SULBACTAM SODIUM
     Route: 042
     Dates: start: 20180427, end: 20180428
  20. PREDNISOLONE. [Concomitant]
     Active Substance: PREDNISOLONE
     Route: 065
  21. CANDESARTAN. [Concomitant]
     Active Substance: CANDESARTAN
     Route: 048
     Dates: start: 20180428
  22. FUROSEMIDE. [Concomitant]
     Active Substance: FUROSEMIDE
     Route: 048
     Dates: start: 20180428, end: 20180502
  23. BETANIS [Concomitant]
     Active Substance: MIRABEGRON
     Route: 048
     Dates: start: 20170315, end: 20180421
  24. POTASSIUM CANRENOATE [Concomitant]
     Active Substance: CANRENOATE POTASSIUM
     Route: 042
     Dates: start: 20180530, end: 20180530
  25. OMEPRAZOLE. [Concomitant]
     Active Substance: OMEPRAZOLE
     Route: 042
     Dates: start: 20180519, end: 20180613
  26. SULTAMICILLIN [Concomitant]
     Active Substance: SULTAMICILLIN
     Route: 042
     Dates: start: 20180428, end: 20180428
  27. PRIMPERAN [Concomitant]
     Active Substance: METOCLOPRAMIDE HYDROCHLORIDE
     Route: 042
     Dates: start: 20180609, end: 20180609
  28. CALONAL [Concomitant]
     Active Substance: ACETAMINOPHEN
     Route: 048
     Dates: start: 20180520, end: 20180520
  29. RISPERDAL [Concomitant]
     Active Substance: RISPERIDONE
     Route: 048
     Dates: start: 20180507
  30. TELEMINSOFT [Concomitant]
     Active Substance: BISACODYL
     Route: 054
     Dates: start: 20180605, end: 20180610
  31. BISONO [Concomitant]
     Active Substance: BISOPROLOL
     Dosage: BISONO TAPE
     Route: 062
     Dates: start: 20180613, end: 20180613
  32. LASIX [Concomitant]
     Active Substance: FUROSEMIDE
     Route: 048
     Dates: start: 20180406, end: 20180427
  33. FUROSEMIDE. [Concomitant]
     Active Substance: FUROSEMIDE
     Route: 048
     Dates: start: 20180427, end: 20180505
  34. URSODEOXYCHOLIC ACID [Concomitant]
     Active Substance: URSODIOL
     Route: 048
     Dates: start: 20180429, end: 20180518
  35. ATARAX-P [Concomitant]
     Active Substance: HYDROXYZINE HYDROCHLORIDE
     Route: 042
     Dates: start: 20180518, end: 20180601
  36. OMEPRAZOLE. [Concomitant]
     Active Substance: OMEPRAZOLE
     Route: 042
     Dates: start: 20180427, end: 20180427
  37. SERENACE [Concomitant]
     Active Substance: HALOPERIDOL
     Route: 042
     Dates: start: 20180428, end: 20180428
  38. HEPARIN SODIUM. [Concomitant]
     Active Substance: HEPARIN SODIUM
     Dosage: 5000UNIT/5ML FOR INJECTION
     Route: 042
     Dates: start: 20180427, end: 20180507
  39. VITAMEDIN (JAPAN) [Concomitant]
     Route: 042
     Dates: start: 20180605, end: 20180605
  40. LOXOPROFEN SODIUM [Concomitant]
     Active Substance: LOXOPROFEN SODIUM
     Route: 048
     Dates: start: 20180507, end: 20180507
  41. BLOPRESS [Concomitant]
     Active Substance: CANDESARTAN CILEXETIL
     Route: 048
     Dates: start: 20100128, end: 20180428
  42. URIEF [Concomitant]
     Active Substance: SILODOSIN
     Dosage: URIEF OD
     Route: 048
     Dates: start: 20070528
  43. URSO [Concomitant]
     Active Substance: URSODIOL
     Route: 048
     Dates: start: 20170412, end: 20180428
  44. CELECOX [Concomitant]
     Active Substance: CELECOXIB
     Route: 048
     Dates: start: 20170920, end: 20180430
  45. ZOLADEX [Concomitant]
     Active Substance: GOSERELIN ACETATE
  46. FUROSEMIDE. [Concomitant]
     Active Substance: FUROSEMIDE
     Dosage: TEVA^
     Route: 048
     Dates: start: 20180417, end: 20180427
  47. CARVEDILOL. [Concomitant]
     Active Substance: CARVEDILOL
     Route: 048
     Dates: start: 20180428, end: 20180518
  48. ZOPICLONE [Concomitant]
     Active Substance: ZOPICLONE
     Route: 048
     Dates: start: 20180419, end: 20180420
  49. TAKECAB [Concomitant]
     Active Substance: VONOPRAZAN FUMURATE
     Route: 048
     Dates: start: 20180428, end: 20180505
  50. BELSOMRA [Concomitant]
     Active Substance: SUVOREXANT
     Route: 048
     Dates: start: 20180428, end: 20180604
  51. SOLACET F [Concomitant]
     Route: 042
     Dates: start: 20180530, end: 20180613
  52. DAIPHEN [Concomitant]
     Active Substance: SULFAMETHOXAZOLE\TRIMETHOPRIM
     Route: 048
     Dates: start: 20180502, end: 20180518
  53. ENZALUTAMIDE [Suspect]
     Active Substance: ENZALUTAMIDE
     Indication: HORMONE-REFRACTORY PROSTATE CANCER
     Dosage: DATE OF MOST RECENT DOSE OF SUSPECTED ENZALUTAMIDE PRIOR TO SAE: 27/APR/2018 (160 MG) AT 07:30
     Route: 048
     Dates: start: 20180418
  54. FUROSEMIDE. [Concomitant]
     Active Substance: FUROSEMIDE
     Route: 042
     Dates: start: 20180427, end: 20180427
  55. HANP [Concomitant]
     Active Substance: CARPERITIDE
     Route: 042
     Dates: start: 20180427, end: 20180428
  56. MYSLEE [Concomitant]
     Active Substance: ZOLPIDEM TARTRATE
     Route: 048
     Dates: start: 20180425, end: 20180425
  57. VEEN-F [Concomitant]
     Active Substance: CALCIUM CHLORIDE\MAGNESIUM CHLORIDE\POTASSIUM CHLORIDE\SODIUM ACETATE\SODIUM CHLORIDE
     Route: 042
     Dates: start: 20180427, end: 20180430
  58. CRAVIT [Concomitant]
     Active Substance: LEVOFLOXACIN
     Route: 048
     Dates: start: 20180507, end: 20180507
  59. ATEZOLIZUMAB. [Suspect]
     Active Substance: ATEZOLIZUMAB
     Indication: HORMONE-REFRACTORY PROSTATE CANCER
     Dosage: DATE OF LAST ATEZOLIZUMAB ADMINISTERED PRIOR TO SAE (SERIOUS ADVERSE EVENT): 18/APR/2018 AT 10:43
     Route: 042
     Dates: start: 20180418
  60. PREDNISOLONE. [Concomitant]
     Active Substance: PREDNISOLONE
     Route: 048
     Dates: start: 20180221, end: 20180501
  61. NITOROL [Concomitant]
     Active Substance: ISOSORBIDE DINITRATE
     Route: 042
     Dates: start: 20180427, end: 20180427
  62. ATARAX-P [Concomitant]
     Active Substance: HYDROXYZINE HYDROCHLORIDE
     Route: 042
     Dates: start: 20180427, end: 20180427
  63. SOL-MELCORT [Concomitant]
     Active Substance: METHYLPREDNISOLONE SODIUM SUCCINATE
     Route: 042
     Dates: start: 20180502, end: 20180613

REACTIONS (2)
  - Pneumonitis [Fatal]
  - Cardiac failure [Not Recovered/Not Resolved]

NARRATIVE: CASE EVENT DATE: 20180427
